FAERS Safety Report 10036366 (Version 2)
Quarter: 2014Q1

REPORT INFORMATION
  Report Type: Spontaneous
  Country: CN (occurrence: CN)
  Receive Date: 20140325
  Receipt Date: 20140325
  Transmission Date: 20141002
  Serious: Yes (Other)
  Sender: FDA-Public Use
  Company Number: PHHY2014CN005696

PATIENT
  Age: 63 Year
  Sex: Female

DRUGS (16)
  1. GRANISETRON [Suspect]
     Indication: PROPHYLAXIS
  2. EPIRUBICIN [Suspect]
     Dates: start: 201102
  3. METHOTREXATE [Suspect]
     Dates: start: 201102
  4. CARBOPLATIN [Suspect]
     Dates: start: 201105
  5. CARBOPLATIN [Suspect]
     Dates: start: 20110611
  6. CARBOPLATIN [Suspect]
     Dates: start: 20110621
  7. PROMETHAZINE [Suspect]
  8. METOCLOPRAMIDE [Suspect]
  9. DEXAMETHASONE [Suspect]
  10. OLANZAPINE [Suspect]
     Dosage: 5 MG, BID
     Route: 048
  11. CYCLOPHOSPHAMIDE [Suspect]
     Dates: start: 201102
  12. NEDAPLATIN [Suspect]
  13. DACTINOMYCIN [Suspect]
  14. PEMETREXED [Suspect]
     Dates: start: 201105
  15. PEMETREXED [Suspect]
     Dates: start: 20110611
  16. PEMETREXED [Suspect]
     Dates: start: 20110621

REACTIONS (11)
  - Ovarian epithelial cancer [Unknown]
  - Malignant neoplasm progression [Unknown]
  - Feeling abnormal [Unknown]
  - Decreased appetite [Unknown]
  - Poor quality sleep [Unknown]
  - Somnolence [Unknown]
  - Faeces hard [Unknown]
  - Vomiting [Recovering/Resolving]
  - Nausea [Recovering/Resolving]
  - Malaise [Unknown]
  - Drug ineffective [Unknown]
